FAERS Safety Report 15087938 (Version 1)
Quarter: 2018Q2

REPORT INFORMATION
  Report Type: Other
  Country: DE (occurrence: DE)
  Receive Date: 20180629
  Receipt Date: 20180629
  Transmission Date: 20180711
  Serious: Yes (Hospitalization, Other)
  Sender: FDA-Public Use
  Company Number: DE-DENTSPLY-2018SCDP000253

PATIENT
  Age: 33 Year
  Sex: Female

DRUGS (2)
  1. XYLOCAINE [Suspect]
     Active Substance: LIDOCAINE HYDROCHLORIDE
     Indication: LOCAL ANAESTHESIA
  2. XYLOCAINE [Suspect]
     Active Substance: LIDOCAINE HYDROCHLORIDE
     Indication: PLASTIC SURGERY TO THE FACE
     Dosage: 15 ML, UNK, PZN 1138002
     Dates: start: 20180212, end: 20180212

REACTIONS (3)
  - Dyspnoea [Unknown]
  - Speech disorder [Unknown]
  - Seizure [Unknown]

NARRATIVE: CASE EVENT DATE: 20180212
